FAERS Safety Report 5027937-7 (Version None)
Quarter: 2006Q2

REPORT INFORMATION
  Report Type: 
  Country: None (occurrence: None)
  Receive Date: 20060501
  Receipt Date: 20060310
  Transmission Date: 20061013
  Serious: Yes (Other)
  Sender: FDA-Public Use
  Company Number: 200612286US

PATIENT
  Age: 37 Year
  Sex: Female

DRUGS (1)
  1. KETEK [Suspect]
     Indication: LYME DISEASE
     Dosage: 400 MG QD PO
     Route: 048
     Dates: start: 20051224, end: 20060201

REACTIONS (2)
  - ALANINE AMINOTRANSFERASE INCREASED [None]
  - ASPARTATE AMINOTRANSFERASE INCREASED [None]
